FAERS Safety Report 23584869 (Version 6)
Quarter: 2024Q2

REPORT INFORMATION
  Report Type: Report from Study
  Country: US (occurrence: US)
  Receive Date: 20240301
  Receipt Date: 20240429
  Transmission Date: 20240716
  Serious: Yes (Other)
  Sender: FDA-Public Use
  Company Number: US-UCBSA-2024009674

PATIENT
  Sex: Male
  Weight: 57 kg

DRUGS (4)
  1. FINTEPLA [Suspect]
     Active Substance: FENFLURAMINE
     Indication: Lennox-Gastaut syndrome
     Dosage: 2.6 MILLILITER, 2X/DAY (BID) FOR 7 DAYS 5.9 ML BID THEREAFTER
     Route: 048
     Dates: start: 20240222, end: 202402
  2. FINTEPLA [Suspect]
     Active Substance: FENFLURAMINE
     Dosage: 5.2 MILLILITER, 2X/DAY (BID)
     Route: 048
     Dates: start: 20240229, end: 20240301
  3. SPRITAM [Concomitant]
     Active Substance: LEVETIRACETAM
     Indication: Epilepsy
     Dosage: 500 MG AM AND 1750 MG PM
     Dates: start: 202008
  4. FELBAMATE [Concomitant]
     Active Substance: FELBAMATE
     Indication: Epilepsy
     Dosage: UNK
     Dates: start: 202003

REACTIONS (8)
  - Seizure [Recovered/Resolved]
  - Change in seizure presentation [Unknown]
  - Fatigue [Recovered/Resolved]
  - Somnolence [Recovered/Resolved]
  - Insomnia [Recovered/Resolved]
  - Pain [Unknown]
  - Skin wrinkling [Unknown]
  - Drooling [Recovered/Resolved]

NARRATIVE: CASE EVENT DATE: 20240101
